FAERS Safety Report 23324428 (Version 1)
Quarter: 2023Q4

REPORT INFORMATION
  Report Type: Spontaneous
  Country: CN (occurrence: CN)
  Receive Date: 20231221
  Receipt Date: 20231221
  Transmission Date: 20240110
  Serious: Yes (Other)
  Sender: FDA-Public Use
  Company Number: None

PATIENT
  Age: 53 Year
  Sex: Female
  Weight: 63 kg

DRUGS (6)
  1. CYCLOPHOSPHAMIDE [Suspect]
     Active Substance: CYCLOPHOSPHAMIDE
     Indication: Breast cancer female
     Dosage: 1 G, ONE TIME IN ONE DAY (DOSAGE FORM: LYOPHILIZED POWDER, DILUTED WITH 200 ML OF 0.9% SODIUM CHLORI
     Route: 041
     Dates: start: 20231026, end: 20231026
  2. CYCLOPHOSPHAMIDE [Suspect]
     Active Substance: CYCLOPHOSPHAMIDE
     Indication: Chemotherapy
  3. SODIUM CHLORIDE [Suspect]
     Active Substance: SODIUM CHLORIDE
     Indication: Medication dilution
     Dosage: 200 ML, ONE TIME IN ONE DAY, USED TO DILUTE 1 G CYCLOPHOSPHAMIDE
     Route: 041
     Dates: start: 20231026, end: 20231026
  4. SODIUM CHLORIDE [Suspect]
     Active Substance: SODIUM CHLORIDE
     Dosage: 200 ML, ONE TIME IN ONE DAY, USED TO DILUTE 80 MG EPIRUBICIN HYDROCHLORIDE
     Route: 041
     Dates: start: 20231025, end: 20231026
  5. EPIRUBICIN HYDROCHLORIDE [Suspect]
     Active Substance: EPIRUBICIN HYDROCHLORIDE
     Indication: Breast cancer female
     Dosage: 80 MG, ONE TIME IN ONE DAY, DILUTED WITH 200ML, 0.9% SODIUM CHLORIDE, D1-D2
     Route: 041
     Dates: start: 20231025, end: 20231026
  6. EPIRUBICIN HYDROCHLORIDE [Suspect]
     Active Substance: EPIRUBICIN HYDROCHLORIDE
     Indication: Chemotherapy

REACTIONS (3)
  - Myelosuppression [Recovering/Resolving]
  - White blood cell count decreased [Recovered/Resolved]
  - Neutrophil count decreased [Recovered/Resolved]

NARRATIVE: CASE EVENT DATE: 20231103
